FAERS Safety Report 11051064 (Version 1)
Quarter: 2015Q2

REPORT INFORMATION
  Report Type: Spontaneous
  Country: IT (occurrence: IT)
  Receive Date: 20150421
  Receipt Date: 20150421
  Transmission Date: 20150821
  Serious: Yes (Hospitalization)
  Sender: FDA-Public Use
  Company Number: IT-TEVA-555620ACC

PATIENT
  Age: 25 Year
  Sex: Male
  Weight: 69 kg

DRUGS (3)
  1. BLEOPRIM - 15 MG POLVERE PER SOLUZIONE INIETTABILE - SANOFI S.P.A. [Suspect]
     Active Substance: BLEOMYCIN SULFATE
     Indication: TESTICULAR SEMINOMA (PURE)
     Dosage: 30 IU CYCLICAL; POWDER FOR SOLUTION FOR INFUSION
     Route: 042
     Dates: start: 20150310, end: 20150310
  2. CISPLATINO TEVA - TEVA PHARMA B.V. [Suspect]
     Active Substance: CISPLATIN
     Indication: TESTICULAR SEMINOMA (PURE)
     Dosage: 35 MILLIGRAM DAILY;
     Route: 042
     Dates: start: 20150309, end: 20150313
  3. ETOPOSIDE TEVA - TEVA PHARMA B.V. [Suspect]
     Active Substance: ETOPOSIDE
     Indication: TESTICULAR SEMINOMA (PURE)
     Dosage: 177 MILLIGRAM DAILY;
     Route: 042
     Dates: start: 20150309, end: 20150313

REACTIONS (2)
  - Hyperpyrexia [Recovering/Resolving]
  - Febrile neutropenia [Recovering/Resolving]

NARRATIVE: CASE EVENT DATE: 20150322
